FAERS Safety Report 14223907 (Version 5)
Quarter: 2018Q2

REPORT INFORMATION
  Report Type: Spontaneous
  Country: IE (occurrence: IE)
  Receive Date: 20171126
  Receipt Date: 20180630
  Transmission Date: 20180711
  Serious: Yes (Other)
  Sender: FDA-Public Use
  Company Number: IE-CONCORDIA PHARMACEUTICALS INC.-E2B_00008510

PATIENT
  Age: 82 Year
  Sex: Male

DRUGS (2)
  1. ABILIFY [Suspect]
     Active Substance: ARIPIPRAZOLE
     Indication: DEPRESSION
     Dosage: 12.5 MG, UNK
     Route: 065
  2. TRANYLCYPROMINE [Suspect]
     Active Substance: TRANYLCYPROMINE
     Indication: PRODUCT USED FOR UNKNOWN INDICATION
     Route: 065

REACTIONS (2)
  - Extrapyramidal disorder [Recovered/Resolved]
  - Product use in unapproved indication [Unknown]
